FAERS Safety Report 6478062-X (Version None)
Quarter: 2009Q4

REPORT INFORMATION
  Report Type: 
  Country: None (occurrence: None)
  Receive Date: 20091207
  Receipt Date: 20091127
  Transmission Date: 20100525
  Serious: Yes (Hospitalization)
  Sender: FDA-Public Use
  Company Number: DE-EISAI INC.-E7273-00109-SPO-DE

PATIENT
  Sex: Female

DRUGS (3)
  1. TARGRETIN [Suspect]
     Route: 048
     Dates: start: 20090710
  2. ATARAX [Concomitant]
     Dates: start: 20070101
  3. CORTISONE [Concomitant]
     Dosage: UNKNOWN

REACTIONS (1)
  - OSTEONECROSIS [None]
